FAERS Safety Report 11564720 (Version 1)
Quarter: 2015Q3

REPORT INFORMATION
  Report Type: Spontaneous
  Country: US (occurrence: US)
  Receive Date: 20150916
  Receipt Date: 20150916
  Transmission Date: 20151125
  Serious: No
  Sender: FDA-Public Use
  Company Number: US-ELI_LILLY_AND_COMPANY-US200903007462

PATIENT
  Age: 74 Year
  Sex: Female

DRUGS (1)
  1. FORTEO [Suspect]
     Active Substance: TERIPARATIDE
     Indication: OSTEOPOROSIS
     Dosage: UNK, UNK
     Dates: start: 20090325, end: 20090326

REACTIONS (9)
  - Malaise [Unknown]
  - Gastrointestinal disorder [Unknown]
  - Flatulence [Unknown]
  - Diarrhoea [Recovered/Resolved]
  - Defaecation urgency [Unknown]
  - Constipation [Unknown]
  - Muscle spasms [Unknown]
  - Nausea [Unknown]
  - Abdominal pain [Unknown]

NARRATIVE: CASE EVENT DATE: 20090326
